FAERS Safety Report 8543932-5 (Version None)
Quarter: 2012Q3

REPORT INFORMATION
  Report Type: 
  Country: None (occurrence: None)
  Receive Date: 20120727
  Receipt Date: 20120718
  Transmission Date: 20120928
  Serious: Yes (Hospitalization)
  Sender: FDA-Public Use
  Company Number: JP-EISAI INC-E7389-01524-SPO-JP

PATIENT
  Sex: Female
  Weight: 64 kg

DRUGS (13)
  1. METFORMIN HCL [Concomitant]
     Route: 048
  2. LIPIDIL [Concomitant]
     Indication: PROPHYLAXIS
     Route: 048
  3. OXYCONTIN [Concomitant]
     Route: 048
  4. OXYCODONE HCL [Concomitant]
     Route: 048
  5. SELBEX [Concomitant]
     Indication: PROPHYLAXIS
     Route: 048
  6. HALAVEN [Suspect]
     Indication: BREAST CANCER RECURRENT
     Route: 041
     Dates: start: 20110805
  7. DECADRON [Concomitant]
     Dates: end: 20110906
  8. ALOSENN [Concomitant]
     Indication: PROPHYLAXIS
     Route: 048
  9. JANUVIA [Concomitant]
     Route: 048
  10. LOXONIN [Concomitant]
     Route: 048
  11. HALCION [Concomitant]
     Route: 048
  12. HALAVEN [Suspect]
     Indication: METASTASES TO LUNG
  13. AMARYL [Concomitant]
     Route: 048

REACTIONS (2)
  - HYPERGLYCAEMIA [None]
  - GAIT DISTURBANCE [None]
